FAERS Safety Report 10714499 (Version 2)
Quarter: 2015Q1

REPORT INFORMATION
  Report Type: Report from Study
  Country: VE (occurrence: VE)
  Receive Date: 20150115
  Receipt Date: 20150204
  Transmission Date: 20150721
  Serious: Yes (Other)
  Sender: FDA-Public Use
  Company Number: VE-ABBVIE-15K-178-1332120-00

PATIENT
  Age: 83 Year
  Sex: Female
  Weight: 59 kg

DRUGS (3)
  1. HUMIRA [Suspect]
     Active Substance: ADALIMUMAB
     Route: 058
     Dates: start: 20150124
  2. PROXICAM [Concomitant]
     Active Substance: PIROXICAM
     Indication: PRODUCT USED FOR UNKNOWN INDICATION
     Route: 048
  3. HUMIRA [Suspect]
     Active Substance: ADALIMUMAB
     Indication: RHEUMATOID ARTHRITIS
     Route: 058
     Dates: start: 201405, end: 201411

REACTIONS (6)
  - Loss of consciousness [Recovered/Resolved]
  - Contusion [Unknown]
  - Fall [Recovering/Resolving]
  - Local swelling [Unknown]
  - Injury [Recovered/Resolved]
  - Dizziness [Unknown]

NARRATIVE: CASE EVENT DATE: 2014
